FAERS Safety Report 5058293-6 (Version None)
Quarter: 2006Q2

REPORT INFORMATION
  Report Type: 
  Country: None (occurrence: None)
  Receive Date: 20060622
  Receipt Date: 20050921
  Transmission Date: 20061013
  Serious: Yes (Death, Other)
  Sender: FDA-Public Use
  Company Number: US-JNJFOC-20060300572

PATIENT
  Age: 39 Year
  Sex: Female
  Weight: 112.4921 kg

DRUGS (16)
  1. DURAGESIC-100 [Suspect]
     Indication: PAIN
     Dosage: SEE IMAGE, TRANSDERMAL
     Route: 062
     Dates: start: 20030714
  2. DURAGESIC-100 [Suspect]
     Indication: PAIN
     Dosage: SEE IMAGE, TRANSDERMAL
     Route: 062
     Dates: start: 20040411
  3. TOPAMAX [Concomitant]
  4. STADOL (BUTORPHANOL TARTRATE) SPRAY [Concomitant]
  5. DECADRON [Concomitant]
  6. PERCOCET [Concomitant]
  7. RESTORIL [Concomitant]
  8. PROZAC [Concomitant]
  9. ASPIRIN [Concomitant]
  10. LASIX [Concomitant]
  11. POTASSIUM (POTASSIUM) [Concomitant]
  12. DIAMOX [Concomitant]
  13. PLAVIX [Concomitant]
  14. PROTONIX [Concomitant]
  15. XANAX [Concomitant]
  16. PEPCID [Concomitant]

REACTIONS (2)
  - DEVICE LEAKAGE [None]
  - NARCOTIC INTOXICATION [None]
